FAERS Safety Report 9294229 (Version 2)
Quarter: 2013Q3

REPORT INFORMATION
  Report Type: Report from Study
  Country: JP (occurrence: JP)
  Receive Date: 20130516
  Receipt Date: 20130924
  Transmission Date: 20140515
  Serious: Yes (Hospitalization)
  Sender: FDA-Public Use
  Company Number: JP-JNJFOC-20130506008

PATIENT
  Age: 77 Year
  Sex: Male
  Weight: 62 kg

DRUGS (5)
  1. SIMPONI [Suspect]
     Indication: RHEUMATOID ARTHRITIS
     Route: 058
     Dates: start: 20130424, end: 20130424
  2. SIMPONI [Suspect]
     Indication: RHEUMATOID ARTHRITIS
     Route: 058
     Dates: start: 20130326, end: 20130326
  3. URINORM [Concomitant]
     Indication: HYPERURICAEMIA
     Route: 048
  4. URALYT [Concomitant]
     Indication: HYPERURICAEMIA
     Route: 048
  5. ROCEPHIN [Concomitant]
     Indication: PNEUMONIA
     Route: 042
     Dates: start: 20130501, end: 20130507

REACTIONS (1)
  - Pneumonia [Recovering/Resolving]
